FAERS Safety Report 9154524 (Version 1)
Quarter: 2013Q1

REPORT INFORMATION
  Report Type: Spontaneous
  Country: DE (occurrence: DE)
  Receive Date: 20130311
  Receipt Date: 20130311
  Transmission Date: 20140127
  Serious: Yes (Other)
  Sender: FDA-Public Use
  Company Number: DE-PFIZER INC-2013063170

PATIENT
  Sex: Male

DRUGS (2)
  1. SORTIS [Suspect]
     Dosage: 10 MG, UNK
  2. ATORVASTATIN CALCIUM [Suspect]

REACTIONS (2)
  - C-reactive protein increased [Unknown]
  - Myalgia [Unknown]
